FAERS Safety Report 16747407 (Version 2)
Quarter: 2019Q4

REPORT INFORMATION
  Report Type: Report from Study
  Country: US (occurrence: US)
  Receive Date: 20190827
  Receipt Date: 20191105
  Transmission Date: 20200122
  Serious: Yes (Death, Hospitalization)
  Sender: FDA-Public Use
  Company Number: US-ACTELION-A-US2016-139059

PATIENT
  Age: 71 Year
  Sex: Female
  Weight: 99.77 kg

DRUGS (4)
  1. OPSUMIT [Suspect]
     Active Substance: MACITENTAN
     Indication: PULMONARY ARTERIAL HYPERTENSION
     Dosage: 10 MG, QD
     Route: 048
     Dates: start: 20150921, end: 20190922
  2. COREG [Concomitant]
     Active Substance: CARVEDILOL
  3. LISINOPRIL. [Concomitant]
     Active Substance: LISINOPRIL
  4. RIOCIGUAT. [Suspect]
     Active Substance: RIOCIGUAT
     Indication: PRODUCT USED FOR UNKNOWN INDICATION
     Route: 065

REACTIONS (13)
  - Death [Fatal]
  - Peripheral swelling [Unknown]
  - Fatigue [Unknown]
  - Productive cough [Unknown]
  - Aneurysm [Unknown]
  - Cough [Unknown]
  - Headache [Unknown]
  - Pruritus [Unknown]
  - Hospitalisation [Not Recovered/Not Resolved]
  - Joint swelling [Unknown]
  - Nasopharyngitis [Unknown]
  - Malaise [Unknown]
  - Hypotension [Unknown]

NARRATIVE: CASE EVENT DATE: 20190922
